FAERS Safety Report 16759177 (Version 1)
Quarter: 2019Q3

REPORT INFORMATION
  Report Type: Spontaneous
  Country: GB (occurrence: GB)
  Receive Date: 20190830
  Receipt Date: 20190830
  Transmission Date: 20191005
  Serious: Yes (Life-Threatening)
  Sender: FDA-Public Use
  Company Number: GB-JNJFOC-20190837151

PATIENT
  Age: 71 Year
  Sex: Male
  Weight: 63.8 kg

DRUGS (15)
  1. ORAMORPH [Concomitant]
     Active Substance: MORPHINE SULFATE
     Dosage: UNK
  2. CETIRIZINE [Concomitant]
     Active Substance: CETIRIZINE HYDROCHLORIDE
     Dosage: UNK
  3. RIVAROXABAN [Suspect]
     Active Substance: RIVAROXABAN
     Indication: ANTIPHOSPHOLIPID SYNDROME
     Dosage: 20 MG, QD
     Route: 048
     Dates: start: 201309
  4. AMITRIPTYLINE [Concomitant]
     Active Substance: AMITRIPTYLINE
     Dosage: UNK
  5. FOSTAIR [Concomitant]
     Active Substance: BECLOMETHASONE\FORMOTEROL
     Dosage: UNK
  6. SALBUTAMOL [Concomitant]
     Active Substance: ALBUTEROL
     Dosage: UNK
  7. TIOTROPIUM [Concomitant]
     Active Substance: TIOTROPIUM
     Dosage: UNK
  8. AZITHROMYCIN ANHYDROUS. [Concomitant]
     Active Substance: AZITHROMYCIN ANHYDROUS
     Dosage: UNK
  9. FINASTERIDE. [Concomitant]
     Active Substance: FINASTERIDE
     Dosage: UNK
  10. GABAPENTIN. [Concomitant]
     Active Substance: GABAPENTIN
     Dosage: UNK
  11. COCODAMOL [Concomitant]
     Active Substance: ACETAMINOPHEN\CODEINE PHOSPHATE
     Dosage: UNK
  12. DISULFIRAM. [Concomitant]
     Active Substance: DISULFIRAM
     Dosage: UNK
  13. ESOMEPRAZOLE. [Concomitant]
     Active Substance: ESOMEPRAZOLE MAGNESIUM
     Dosage: UNK
  14. DILTIAZEM. [Concomitant]
     Active Substance: DILTIAZEM
     Dosage: UNK
  15. MIRTAZAPINE. [Concomitant]
     Active Substance: MIRTAZAPINE
     Dosage: UNK

REACTIONS (3)
  - Ischaemic stroke [Recovered/Resolved with Sequelae]
  - Movement disorder [Unknown]
  - Speech disorder [Unknown]

NARRATIVE: CASE EVENT DATE: 20190626
